FAERS Safety Report 6438138-X (Version None)
Quarter: 2009Q4

REPORT INFORMATION
  Report Type: 
  Country: None (occurrence: None)
  Receive Date: 20091112
  Receipt Date: 20091029
  Transmission Date: 20100525
  Serious: Yes (Other)
  Sender: FDA-Public Use
  Company Number: FR-PFIZER INC-2009277879

PATIENT
  Age: 53 Year
  Sex: Male

DRUGS (2)
  1. METHYLPREDNISOLONE AND METHYLPREDNISOLONE ACETATE AND METHYLPREDNISOLO [Suspect]
  2. PREDNISOLONE AND PREDNISOLONE STEAGLATE [Suspect]

REACTIONS (4)
  - LUNG INFECTION PSEUDOMONAL [None]
  - RESPIRATORY FAILURE [None]
  - SEPSIS [None]
  - STRONGYLOIDIASIS [None]
